FAERS Safety Report 4891425-9 (Version None)
Quarter: 2006Q1

REPORT INFORMATION
  Report Type: 
  Country: None (occurrence: None)
  Receive Date: 20060125
  Receipt Date: 20060109
  Transmission Date: 20060701
  Serious: Yes (Other)
  Sender: FDA-Public Use
  Company Number: GB-BOEHRINGER INGELHEIM PHARMACEUTICALS, INC.-2006-BP-00883YA

PATIENT
  Sex: Male

DRUGS (7)
  1. TAMSULOSIN HCL [Suspect]
     Indication: BENIGN PROSTATIC HYPERPLASIA
     Route: 048
     Dates: start: 20050616
  2. TAMSULOSIN HCL [Suspect]
     Indication: POLLAKIURIA
  3. LISINOPRIL [Suspect]
     Indication: HYPERTENSION
     Route: 048
     Dates: start: 20000117
  4. AMIODARONE HCL [Suspect]
     Indication: CARDIAC FIBRILLATION
     Route: 048
     Dates: start: 20000117
  5. ATENOLOL [Concomitant]
     Indication: ARRHYTHMIA
     Dates: start: 20000101
  6. BUMETANIDE [Concomitant]
     Indication: CARDIAC FAILURE CONGESTIVE
     Route: 048
     Dates: start: 20000117
  7. PROMETHAZINE [Concomitant]
     Indication: SLEEP DISORDER
     Route: 048
     Dates: start: 20040527

REACTIONS (1)
  - GYNAECOMASTIA [None]
